FAERS Safety Report 8072900-5 (Version None)
Quarter: 2012Q1

REPORT INFORMATION
  Report Type: 
  Country: None (occurrence: None)
  Receive Date: 20120120
  Receipt Date: 20120109
  Transmission Date: 20120608
  Serious: Yes (Other)
  Sender: FDA-Public Use
  Company Number: 2012ST000067

PATIENT
  Age: 15 Year
  Sex: Female

DRUGS (1)
  1. ADAGEN [Suspect]
     Indication: COMBINED IMMUNODEFICIENCY
     Dosage: ADAGEN (PEGADEMASE) 250 IU; BIW; IM ; SC
     Route: 058

REACTIONS (3)
  - PULMONARY ALVEOLAR HAEMORRHAGE [None]
  - PERITONEAL HAEMORRHAGE [None]
  - IDIOPATHIC THROMBOCYTOPENIC PURPURA [None]
